FAERS Safety Report 5212122-6 (Version None)
Quarter: 2007Q1

REPORT INFORMATION
  Report Type: 
  Country: None (occurrence: None)
  Receive Date: 20070118
  Receipt Date: 20070110
  Transmission Date: 20070707
  Serious: Yes (Other)
  Sender: FDA-Public Use
  Company Number: PHBS2007JP00709

PATIENT
  Age: 64 Year
  Sex: Female

DRUGS (4)
  1. STARSIS [Suspect]
     Indication: DIABETES MELLITUS
     Dosage: 270 MG/DAY
     Route: 048
     Dates: start: 20050301
  2. GLIMICRON [Concomitant]
     Dosage: 20 MG, UNK
     Route: 048
     Dates: start: 20050301
  3. MEVALOTIN [Concomitant]
     Dosage: 5 MG, UNK
     Route: 048
     Dates: start: 20050301
  4. VOGLIBOSE [Concomitant]
     Route: 048

REACTIONS (4)
  - ALANINE AMINOTRANSFERASE INCREASED [None]
  - ASPARTATE AMINOTRANSFERASE INCREASED [None]
  - GAMMA-GLUTAMYLTRANSFERASE INCREASED [None]
  - LIVER DISORDER [None]
